FAERS Safety Report 7797968-2 (Version None)
Quarter: 2011Q4

REPORT INFORMATION
  Report Type: 
  Country: None (occurrence: None)
  Receive Date: 20111005
  Receipt Date: 20110929
  Transmission Date: 20120403
  Serious: Yes (Death)
  Sender: FDA-Public Use
  Company Number: US-GLAXOSMITHKLINE-A0946904A

PATIENT
  Age: 59 Year
  Sex: Female
  Weight: 72.7 kg

DRUGS (7)
  1. XANAX [Concomitant]
  2. TRAZODONE HYDROCHLORIDE [Concomitant]
  3. HERCEPTIN [Concomitant]
  4. TYKERB [Suspect]
     Dosage: 1250MG PER DAY
     Route: 048
     Dates: start: 20090901
  5. POTASSIUM [Concomitant]
  6. FUROSEMIDE [Concomitant]
  7. ZOFRAN [Concomitant]

REACTIONS (1)
  - DEATH [None]
